FAERS Safety Report 25335274 (Version 1)
Quarter: 2025Q2

REPORT INFORMATION
  Report Type: Spontaneous
  Country: US (occurrence: US)
  Receive Date: 20250520
  Receipt Date: 20250520
  Transmission Date: 20250717
  Serious: No
  Sender: ABBVIE
  Company Number: US-ABBVIE-6283521

PATIENT
  Age: 70 Year
  Sex: Female
  Weight: 83 kg

DRUGS (2)
  1. INFED [Suspect]
     Active Substance: IRON DEXTRAN
     Indication: Serum ferritin decreased
     Route: 042
     Dates: start: 20250506
  2. TIROSINT [Concomitant]
     Active Substance: LEVOTHYROXINE SODIUM
     Indication: Thyroidectomy

REACTIONS (4)
  - Restlessness [Recovering/Resolving]
  - Paraesthesia oral [Recovered/Resolved]
  - Fatigue [Recovering/Resolving]
  - Dyspnoea [Unknown]

NARRATIVE: CASE EVENT DATE: 20250501
